FAERS Safety Report 15377401 (Version 2)
Quarter: 2018Q3

REPORT INFORMATION
  Report Type: Report from Study
  Country: DE (occurrence: DE)
  Receive Date: 20180913
  Receipt Date: 20180922
  Transmission Date: 20181010
  Serious: Yes (Hospitalization)
  Sender: FDA-Public Use
  Company Number: DE-TAKEDA-2018TUS026976

PATIENT

DRUGS (1)
  1. PONATINIB [Suspect]
     Active Substance: PONATINIB
     Indication: GASTROINTESTINAL STROMAL TUMOUR
     Dosage: 30 MG, UNK
     Route: 065
     Dates: start: 20180525

REACTIONS (1)
  - Intermittent claudication [Not Recovered/Not Resolved]

NARRATIVE: CASE EVENT DATE: 20180906
